FAERS Safety Report 5263237-8 (Version None)
Quarter: 2007Q1

REPORT INFORMATION
  Report Type: 
  Country: None (occurrence: None)
  Receive Date: 20061219
  Receipt Date: 20060901
  Transmission Date: 20070707
  Serious: No
  Sender: FDA-Public Use
  Company Number: 2006US002012

PATIENT
  Age: 70 Year
  Sex: Female

DRUGS (3)
  1. VESICARE [Suspect]
     Indication: POLLAKIURIA
     Dosage: 5 MG, UID/QD, ORAL
     Route: 048
  2. ZOCOR [Concomitant]
  3. TRICOR [Concomitant]

REACTIONS (3)
  - ABDOMINAL PAIN [None]
  - CHILLS [None]
  - HEPATIC ENZYME INCREASED [None]
